FAERS Safety Report 6409977-6 (Version None)
Quarter: 2009Q4

REPORT INFORMATION
  Report Type: 
  Country: None (occurrence: None)
  Receive Date: 20091022
  Receipt Date: 20090827
  Transmission Date: 20100525
  Serious: No
  Sender: FDA-Public Use
  Company Number: US-BAYER-200924498NA

PATIENT
  Age: 26 Year
  Sex: Female
  Weight: 58 kg

DRUGS (2)
  1. MIRENA [Suspect]
     Indication: CONTRACEPTION
     Dosage: CONTINUOUS
     Route: 015
     Dates: start: 20090508, end: 20090527
  2. NUVARING [Concomitant]
     Dates: start: 20090527

REACTIONS (3)
  - ABDOMINAL PAIN LOWER [None]
  - MEDICAL DEVICE COMPLICATION [None]
  - VAGINAL HAEMORRHAGE [None]
